FAERS Safety Report 23218941 (Version 1)
Quarter: 2023Q4

REPORT INFORMATION
  Report Type: Spontaneous
  Country: FR (occurrence: FR)
  Receive Date: 20231122
  Receipt Date: 20231122
  Transmission Date: 20240109
  Serious: Yes (Other)
  Sender: FDA-Public Use
  Company Number: FR-AFSSAPS-RN2023000849

PATIENT
  Age: 86 Year
  Sex: Male

DRUGS (1)
  1. CIPROFLOXACIN [Suspect]
     Active Substance: CIPROFLOXACIN
     Indication: Intervertebral discitis
     Dosage: 1 GRAM, 500MG 1-0-1
     Route: 048
     Dates: start: 20230704, end: 20230706

REACTIONS (2)
  - Hallucination, visual [Recovered/Resolved]
  - Tremor [Recovered/Resolved]

NARRATIVE: CASE EVENT DATE: 20230706
